FAERS Safety Report 11293602 (Version 1)
Quarter: 2015Q3

REPORT INFORMATION
  Report Type: Spontaneous
  Country: GB (occurrence: GB)
  Receive Date: 20150722
  Receipt Date: 20150722
  Transmission Date: 20151125
  Serious: Yes (Other)
  Sender: FDA-Public Use
  Company Number: GB-TAKEDA-2015TUS009390

PATIENT
  Age: 61 Year
  Sex: Female

DRUGS (1)
  1. COLCHICINE. [Suspect]
     Active Substance: COLCHICINE
     Indication: BILIARY CIRRHOSIS PRIMARY
     Dosage: 0.5 MG, BID
     Route: 065

REACTIONS (5)
  - Renal failure [Unknown]
  - Tuberculosis of genitourinary system [Unknown]
  - Neuropathy peripheral [Recovered/Resolved]
  - Diarrhoea [Unknown]
  - Product use issue [Recovered/Resolved]
